FAERS Safety Report 7110417-2 (Version None)
Quarter: 2010Q4

REPORT INFORMATION
  Report Type: 
  Country: None (occurrence: None)
  Receive Date: 20101118
  Receipt Date: 20101108
  Transmission Date: 20110411
  Serious: Yes (Other)
  Sender: FDA-Public Use
  Company Number: US-JNJFOC-20100904913

PATIENT
  Sex: Female
  Weight: 76.48 kg

DRUGS (11)
  1. REMICADE [Suspect]
     Indication: RHEUMATOID ARTHRITIS
     Route: 042
  2. NEURONTIN [Concomitant]
     Indication: CONVULSION
  3. VALIUM [Concomitant]
     Indication: CONVULSION
  4. SYNTHROID [Concomitant]
  5. COREG [Concomitant]
     Indication: HEART RATE IRREGULAR
  6. POTASSIUM CHLORIDE [Concomitant]
  7. KAPIDEX [Concomitant]
     Indication: GASTRIC ULCER
  8. ARAVA [Concomitant]
     Indication: RHEUMATOID ARTHRITIS
  9. VITAMIN D [Concomitant]
  10. VITAMIN B-12 [Concomitant]
     Route: 050
  11. FISH OIL [Concomitant]
     Route: 050

REACTIONS (6)
  - ANTIBIOTIC RESISTANT STAPHYLOCOCCUS TEST [None]
  - CLOSTRIDIAL INFECTION [None]
  - JAW OPERATION [None]
  - OSTEOMYELITIS [None]
  - PLASTIC SURGERY TO THE FACE [None]
  - SINUSITIS [None]
